FAERS Safety Report 5159135-0 (Version None)
Quarter: 2006Q4

REPORT INFORMATION
  Report Type: 
  Country: None (occurrence: None)
  Receive Date: 20061117
  Receipt Date: 20061031
  Transmission Date: 20070319
  Serious: Yes (Death)
  Sender: FDA-Public Use
  Company Number: CA-2005-022343

PATIENT
  Age: 62 Year
  Sex: Male

DRUGS (1)
  1. BETAFERON (INTERFERON BETA-1B) INJECTION, 250?G [Suspect]
     Dosage: 8 MIU, EVERY 2D, SUBCUTANEOUS
     Route: 058
     Dates: end: 20050913

REACTIONS (1)
  - PLEURAL EFFUSION [None]
